FAERS Safety Report 10717732 (Version 1)
Quarter: 2015Q1

REPORT INFORMATION
  Report Type: Spontaneous
  Country: US (occurrence: US)
  Receive Date: 20150116
  Receipt Date: 20150116
  Transmission Date: 20150721
  Serious: No
  Sender: FDA-Public Use
  Company Number: US-GLAXOSMITHKLINE-US2014GSK045607

PATIENT
  Sex: Female

DRUGS (3)
  1. TYKERB [Suspect]
     Active Substance: LAPATINIB DITOSYLATE
     Indication: BREAST CANCER
     Dosage: 1250 MG, QD
     Route: 048
     Dates: start: 20140926
  2. XELODA [Suspect]
     Active Substance: CAPECITABINE
  3. INFUSION THERAPY (MEDICATION UNKNOWN) [Suspect]
     Active Substance: UNSPECIFIED INGREDIENT

REACTIONS (7)
  - Skin discolouration [Unknown]
  - Pain of skin [Unknown]
  - Skin hyperpigmentation [Unknown]
  - Pain in extremity [Unknown]
  - Peripheral swelling [Unknown]
  - Skin swelling [Unknown]
  - Palmar-plantar erythrodysaesthesia syndrome [Unknown]
